FAERS Safety Report 14521995 (Version 1)
Quarter: 2018Q1

REPORT INFORMATION
  Report Type: Spontaneous
  Country: US (occurrence: US)
  Receive Date: 20180212
  Receipt Date: 20180212
  Transmission Date: 20180509
  Serious: Yes (Other)
  Sender: FDA-Public Use
  Company Number: US-GE HEALTHCARE LIFE SCIENCES-2018CSU000586

PATIENT
  Sex: Male

DRUGS (1)
  1. OMNISCAN [Suspect]
     Active Substance: GADODIAMIDE
     Indication: PROSTATE CANCER
     Dosage: 10 ML, SINGLE
     Route: 065
     Dates: start: 20171209, end: 20171209

REACTIONS (1)
  - Contrast media deposition [Not Recovered/Not Resolved]

NARRATIVE: CASE EVENT DATE: 201801
